FAERS Safety Report 15700835 (Version 6)
Quarter: 2018Q4

REPORT INFORMATION
  Report Type: Spontaneous
  Country: US (occurrence: US)
  Receive Date: 20181207
  Receipt Date: 20181228
  Transmission Date: 20190205
  Serious: Yes (Hospitalization)
  Sender: FDA-Public Use
  Company Number: US-CELGENEUS-USA-20181110455

PATIENT
  Age: 69 Year
  Sex: Female
  Weight: 43.13 kg

DRUGS (2)
  1. POMALYST [Suspect]
     Active Substance: POMALIDOMIDE
     Indication: PLASMA CELL MYELOMA
     Dosage: 3 MILLIGRAM
     Route: 048
     Dates: start: 20180629
  2. POMALYST [Suspect]
     Active Substance: POMALIDOMIDE
     Dosage: 1 MILLIGRAM
     Route: 048
     Dates: start: 201811

REACTIONS (3)
  - Hip fracture [Recovered/Resolved]
  - Contusion [Recovered/Resolved]
  - Fall [Recovered/Resolved]

NARRATIVE: CASE EVENT DATE: 20181023
